FAERS Safety Report 4536111-X (Version None)
Quarter: 2004Q4

REPORT INFORMATION
  Report Type: 
  Country: None (occurrence: None)
  Receive Date: 20041214
  Receipt Date: 20040127
  Transmission Date: 20050328
  Serious: Yes (Death)
  Sender: FDA-Public Use
  Company Number: 2004196616FR

PATIENT
  Age: 54 Year
  Sex: Female

DRUGS (7)
  1. XANAX [Suspect]
     Dosage: 0.5 MG, QID, ORAL
     Route: 048
  2. MIRTAZAPINE [Suspect]
     Dosage: 30 MG, QD, ORAL
     Route: 048
     Dates: start: 20040112
  3. LORAZEPAM [Suspect]
     Dosage: ORAL
     Route: 048
  4. LEVOTHYROXINE SODIUM [Concomitant]
  5. TAREG(VALSARTAN) [Suspect]
     Dosage: ORAL
     Route: 048
  6. DAFLON(DIOSMIN) [Suspect]
     Dosage: 500 MG, BID, ORAL
     Route: 048
     Dates: start: 20040112
  7. EFFEXOR [Concomitant]

REACTIONS (1)
  - DEATH [None]
